FAERS Safety Report 19699586 (Version 2)
Quarter: 2022Q1

REPORT INFORMATION
  Report Type: Spontaneous
  Country: US (occurrence: US)
  Receive Date: 20210813
  Receipt Date: 20220210
  Transmission Date: 20220423
  Serious: Yes (Other)
  Sender: FDA-Public Use
  Company Number: US-FRESENIUS KABI-FK202108505

PATIENT
  Sex: Male

DRUGS (4)
  1. VINBLASTINE [Suspect]
     Active Substance: VINBLASTINE
     Indication: Hodgkin^s disease
     Dosage: 2 DOSES (1 CYCLE) OF BV+AVD  (BRENTUXIMAB VEDOTIN (ADCETRIS) DOXORUBICIN, VINBLASTINE, DACARBAZINE)
     Route: 065
  2. BRENTUXIMAB VEDOTIN [Suspect]
     Active Substance: BRENTUXIMAB VEDOTIN
     Indication: Hodgkin^s disease
     Dosage: 2 DOSES (1 CYCLE) OF BV+AVD  (BRENTUXIMAB VEDOTIN (ADCETRIS) DOXORUBICIN, VINBLASTINE, DACARBAZINE)
     Route: 065
  3. DOXORUBICIN [Suspect]
     Active Substance: DOXORUBICIN
     Indication: Hodgkin^s disease
     Dosage: 2 DOSES (1 CYCLE) OF BV+AVD  (BRENTUXIMAB VEDOTIN (ADCETRIS) DOXORUBICIN, VINBLASTINE, DACARBAZINE)
     Route: 065
  4. DACARBAZINE [Suspect]
     Active Substance: DACARBAZINE
     Indication: Hodgkin^s disease
     Dosage: 2 DOSES (1 CYCLE) OF BV+AVD  (BRENTUXIMAB VEDOTIN (ADCETRIS) DOXORUBICIN, VINBLASTINE, DACARBAZINE)
     Route: 065

REACTIONS (3)
  - Peripheral motor neuropathy [Recovering/Resolving]
  - Peroneal nerve palsy [Recovering/Resolving]
  - Fall [Unknown]

NARRATIVE: CASE EVENT DATE: 20210101
